FAERS Safety Report 20568318 (Version 10)
Quarter: 2023Q1

REPORT INFORMATION
  Report Type: Report from Study
  Country: US (occurrence: None)
  Receive Date: 20220308
  Receipt Date: 20230109
  Transmission Date: 20230417
  Serious: Yes (Other)
  Sender: FDA-Public Use
  Company Number: US-ROCHE-3036831

PATIENT
  Age: 51 Year
  Sex: Male
  Weight: 114 kg

DRUGS (18)
  1. RANIBIZUMAB [Suspect]
     Active Substance: RANIBIZUMAB
     Indication: Diabetic retinal oedema
     Dosage: DOSE: 10 MG/ML?DOSE LAST STUDY DRUG ADMIN PRIOR AE/SAE 100 MG/ML.?ON 08/FEB/2022, MOST RECENT DOSE O
     Route: 050
     Dates: start: 20201111
  2. RANIBIZUMAB [Suspect]
     Active Substance: RANIBIZUMAB
     Dosage: DATE OF DEVICE DEFICIENCY * 08-FEB-2022
  3. RANIBIZUMAB [Suspect]
     Active Substance: RANIBIZUMAB
  4. RANIBIZUMAB [Suspect]
     Active Substance: RANIBIZUMAB
  5. JANUVIA [Concomitant]
     Active Substance: SITAGLIPTIN PHOSPHATE
     Indication: Diabetes mellitus
     Dosage: DOSE 100 MG/ML
     Route: 048
     Dates: start: 20191101, end: 20220315
  6. LISINOPRIL [Concomitant]
     Active Substance: LISINOPRIL
     Indication: Hypertension
     Dosage: 20 MG/ML
     Route: 048
     Dates: start: 19960101, end: 20220315
  7. PRAVASTATIN SODIUM [Concomitant]
     Active Substance: PRAVASTATIN SODIUM
     Indication: Blood cholesterol increased
     Dosage: DOSE 40 MG/ML
     Route: 048
     Dates: start: 19940101, end: 20220315
  8. METFORMIN HYDROCHLORIDE [Concomitant]
     Active Substance: METFORMIN HYDROCHLORIDE
     Indication: Diabetes mellitus
     Dosage: DOSE 500 MG/ML
     Route: 048
     Dates: start: 20200101, end: 20220315
  9. RANEXA [Concomitant]
     Active Substance: RANOLAZINE
     Indication: Coronary artery disease
     Dosage: DOSE:  500 MG/ML
     Route: 048
     Dates: start: 20180818, end: 20220315
  10. VITAMIN C [Concomitant]
     Active Substance: ASCORBIC ACID
     Dosage: 1000 MG/ML
     Route: 048
     Dates: start: 20050101, end: 20220315
  11. DYMISTA [Concomitant]
     Active Substance: AZELASTINE HYDROCHLORIDE\FLUTICASONE PROPIONATE
     Indication: Seasonal allergy
     Dosage: DOSE 137 SPRAY
     Route: 055
     Dates: start: 20000101
  12. TRULICITY [Concomitant]
     Active Substance: DULAGLUTIDE
     Indication: Diabetes mellitus
     Dosage: DOSE 1.5 MG/ML
     Route: 058
     Dates: start: 20180301, end: 20220315
  13. ERYTHROMYCIN [Concomitant]
     Active Substance: ERYTHROMYCIN
     Indication: Prophylaxis
     Dosage: DOSE 1 OTHER
     Route: 061
     Dates: start: 20210310
  14. ASPIRIN [Concomitant]
     Active Substance: ASPIRIN
     Indication: Coronary artery disease
     Dosage: DOSE 81 MG/ML
     Route: 048
     Dates: start: 20210819, end: 20220315
  15. OFLOXACIN [Concomitant]
     Active Substance: OFLOXACIN
     Route: 047
     Dates: start: 20220208, end: 20220215
  16. PAXLOVID [Concomitant]
     Active Substance: NIRMATRELVIR\RITONAVIR
     Indication: COVID-19
     Route: 048
     Dates: start: 20220629, end: 20220703
  17. RANIBIZUMAB [Concomitant]
     Active Substance: RANIBIZUMAB
     Dosage: FELLOW EYE TREATMENT
     Route: 050
  18. OZEMPIC [Concomitant]
     Active Substance: SEMAGLUTIDE
     Indication: Diabetes mellitus
     Dosage: 1 MG/ML
     Route: 058
     Dates: start: 20221110

REACTIONS (3)
  - Device issue [Unknown]
  - Device issue [Unknown]
  - No adverse event [Unknown]

NARRATIVE: CASE EVENT DATE: 20220208
